FAERS Safety Report 16083879 (Version 1)
Quarter: 2019Q1

REPORT INFORMATION
  Report Type: Report from Study
  Country: US (occurrence: US)
  Receive Date: 20190318
  Receipt Date: 20190318
  Transmission Date: 20190418
  Serious: Yes (Hospitalization)
  Sender: FDA-Public Use
  Company Number: US-PFIZER INC-2018398121

PATIENT
  Age: 61 Year
  Sex: Female

DRUGS (2)
  1. SUTENT [Suspect]
     Active Substance: SUNITINIB MALATE
     Indication: RENAL CELL CARCINOMA
     Dosage: 50 MG, CYCLIC (DAILY FOR 4 WEEKS ON, THEN 2 WEEKS OFF)
     Route: 048
     Dates: start: 20180921, end: 201810
  2. SUTENT [Suspect]
     Active Substance: SUNITINIB MALATE
     Dosage: 37.5 MG, CYCLIC (DAILY FOR 4 WEEKS ON, THEN 2 WEEKS OFF)
     Route: 048
     Dates: start: 20181102

REACTIONS (24)
  - Enteritis infectious [Unknown]
  - Chills [Unknown]
  - Blood pressure increased [Recovering/Resolving]
  - Asthenia [Unknown]
  - Platelet count decreased [Unknown]
  - Headache [Recovering/Resolving]
  - Blood glucose increased [Unknown]
  - Abdominal pain [Unknown]
  - Blood calcium abnormal [Unknown]
  - Vomiting [Recovering/Resolving]
  - Weight decreased [Recovering/Resolving]
  - Stomatitis [Unknown]
  - Rash [Unknown]
  - White blood cell count decreased [Unknown]
  - Decreased appetite [Recovering/Resolving]
  - Product dose omission [Unknown]
  - Blood pressure fluctuation [Recovering/Resolving]
  - Diarrhoea [Unknown]
  - Thyroid function test abnormal [Unknown]
  - Nausea [Unknown]
  - Foot deformity [Unknown]
  - Dehydration [Recovering/Resolving]
  - Fatigue [Unknown]
  - Poor quality sleep [Unknown]

NARRATIVE: CASE EVENT DATE: 2018
